FAERS Safety Report 6156406-6 (Version None)
Quarter: 2009Q2

REPORT INFORMATION
  Report Type: 
  Country: None (occurrence: None)
  Receive Date: 20090413
  Receipt Date: 20090407
  Transmission Date: 20091009
  Serious: Yes (Other)
  Sender: FDA-Public Use
  Company Number: A0775019A

PATIENT
  Age: 87 Year
  Sex: Male

DRUGS (1)
  1. UREA PEROXIDE [Suspect]
     Indication: CERUMEN REMOVAL
     Dosage: AURAL
     Route: 001

REACTIONS (2)
  - CERUMEN IMPACTION [None]
  - DEAFNESS TRANSITORY [None]
